FAERS Safety Report 13123465 (Version 3)
Quarter: 2018Q2

REPORT INFORMATION
  Report Type: Report from Study
  Country: US (occurrence: US)
  Receive Date: 20170117
  Receipt Date: 20180622
  Transmission Date: 20180711
  Serious: Yes (Hospitalization)
  Sender: FDA-Public Use
  Company Number: US-ACTELION-A-NJ2017-148291

PATIENT
  Age: 49 Year
  Sex: Female
  Weight: 100.23 kg

DRUGS (7)
  1. ADCIRCA [Concomitant]
     Active Substance: TADALAFIL
  2. WARFARIN [Concomitant]
     Active Substance: WARFARIN
  3. UPTRAVI [Suspect]
     Active Substance: SELEXIPAG
     Indication: PULMONARY HYPERTENSION
     Dosage: 800 MCG, BID
     Route: 048
     Dates: start: 20160330
  4. UPTRAVI [Suspect]
     Active Substance: SELEXIPAG
     Dosage: 1600 MCG, BID
     Route: 048
  5. REMODULIN [Concomitant]
     Active Substance: TREPROSTINIL
     Dosage: 18 NG/KG, PER MIN
     Route: 065
     Dates: start: 20180615
  6. REMODULIN [Concomitant]
     Active Substance: TREPROSTINIL
     Dosage: 13.5 NG/KG, PER MIN
     Route: 065
     Dates: start: 20180615
  7. LETAIRIS [Concomitant]
     Active Substance: AMBRISENTAN

REACTIONS (8)
  - Influenza [Unknown]
  - Pneumonia [Unknown]
  - Pain in extremity [Unknown]
  - Nausea [Unknown]
  - Trismus [Unknown]
  - Headache [Unknown]
  - Muscle spasms [Unknown]
  - Vomiting [Unknown]

NARRATIVE: CASE EVENT DATE: 20180615
